FAERS Safety Report 9447767 (Version 4)
Quarter: 2014Q1

REPORT INFORMATION
  Report Type: Spontaneous
  Country: IT (occurrence: IT)
  Receive Date: 20130808
  Receipt Date: 20140228
  Transmission Date: 20141002
  Serious: No
  Sender: FDA-Public Use
  Company Number: IT-UCBSA-094502

PATIENT
  Age: 23 Year
  Sex: Female

DRUGS (3)
  1. KEPPRA [Suspect]
     Indication: GRAND MAL CONVULSION
     Dosage: STRENGTH: 500 MG; 1 TABLET IN THE MORNING AND 1 TABLET IN THE EVENING
     Route: 048
     Dates: start: 20100101
  2. TEGRETOL [Suspect]
     Indication: GRAND MAL CONVULSION
     Dosage: STRENGTH: 400 MG  TABLETS; 2 TABLETS IN THE MORNING AND 2 TABLETS IN THE EVENING
     Route: 048
     Dates: start: 19990101
  3. CARBAMAZEPINE [Concomitant]
     Indication: EPILEPSY

REACTIONS (1)
  - Leukopenia [Unknown]
